FAERS Safety Report 5055456-0 (Version None)
Quarter: 2006Q3

REPORT INFORMATION
  Report Type: 
  Country: None (occurrence: None)
  Receive Date: 20060714
  Receipt Date: 20060626
  Transmission Date: 20061208
  Serious: Yes (Other)
  Sender: FDA-Public Use
  Company Number: 2006RR-02839

PATIENT
  Age: 56 Year
  Sex: Male

DRUGS (4)
  1. SIMVASTATIN [Suspect]
     Indication: HYPERCHOLESTEROLAEMIA
     Dosage: 10 MG, QD, ORAL
     Route: 048
  2. ENALAPRIL MALEATE [Concomitant]
  3. NIFEDIPINE [Concomitant]
  4. ATENOLOL [Concomitant]

REACTIONS (2)
  - TENDONITIS [None]
  - TENOSYNOVITIS [None]
